FAERS Safety Report 11536596 (Version 1)
Quarter: 2015Q3

REPORT INFORMATION
  Report Type: Spontaneous
  Country: US (occurrence: US)
  Receive Date: 20150922
  Receipt Date: 20150922
  Transmission Date: 20151125
  Serious: Yes (Hospitalization)
  Sender: FDA-Public Use
  Company Number: US-PFIZER INC-2015303956

PATIENT
  Age: 54 Year
  Sex: Female

DRUGS (6)
  1. PHENYTOIN. [Suspect]
     Active Substance: PHENYTOIN
     Dosage: 1000 MG, UNK
  2. PHENOBARBITAL. [Concomitant]
     Active Substance: PHENOBARBITAL
     Indication: SEIZURE
     Dosage: 60 MG, 2X/DAY
  3. PHENYTOIN. [Suspect]
     Active Substance: PHENYTOIN
     Indication: SEIZURE
     Dosage: 200 MG, 2X/DAY
  4. PERPHENAZINE. [Concomitant]
     Active Substance: PERPHENAZINE
     Dosage: 4 MG, 3X/DAY
  5. PRIMIDONE. [Concomitant]
     Active Substance: PRIMIDONE
     Indication: SEIZURE
     Dosage: 125 MG, 2X/DAY
  6. THIORIDAZINE [Concomitant]
     Active Substance: THIORIDAZINE
     Dosage: 100 MG, 2X/DAY

REACTIONS (5)
  - Nystagmus [Recovered/Resolved]
  - Ataxia [Recovering/Resolving]
  - Hirsutism [Unknown]
  - Gingival hyperplasia [Unknown]
  - Toxicity to various agents [Recovered/Resolved]
